FAERS Safety Report 17079364 (Version 1)
Quarter: 2019Q4

REPORT INFORMATION
  Report Type: Spontaneous
  Country: US (occurrence: US)
  Receive Date: 20191029
  Receipt Date: 20191029
  Transmission Date: 20200122
  Serious: Yes (Hospitalization)
  Sender: FDA-Public Use
  Company Number: None

PATIENT
  Sex: Female

DRUGS (1)
  1. EPOPROSTENOL SOD 1.5MG/VL TEVA PARENTERAL MEDICINES [Suspect]
     Active Substance: EPOPROSTENOL SODIUM
     Indication: PULMONARY ARTERIAL HYPERTENSION
     Dosage: ?          OTHER STRENGTH:1.5MG/VL;?
     Route: 042
     Dates: start: 20190808

REACTIONS (3)
  - Diarrhoea [None]
  - Nausea [None]
  - Vomiting [None]
